FAERS Safety Report 6706542-8 (Version None)
Quarter: 2010Q2

REPORT INFORMATION
  Report Type: 
  Country: None (occurrence: None)
  Receive Date: 20100503
  Receipt Date: 20100428
  Transmission Date: 20101027
  Serious: Yes (Death, Other)
  Sender: FDA-Public Use
  Company Number: PHHY2010AU24216

PATIENT
  Sex: Male

DRUGS (2)
  1. GLEEVEC [Suspect]
     Indication: GASTROINTESTINAL STROMAL TUMOUR
     Dosage: 400 MG, UNK
     Route: 048
     Dates: start: 20080601, end: 20081201
  2. GLEEVEC [Suspect]
     Dosage: 800 MG, UNK
     Route: 048
     Dates: end: 20091201

REACTIONS (4)
  - DEATH [None]
  - GASTROINTESTINAL STROMAL TUMOUR [None]
  - MALIGNANT NEOPLASM PROGRESSION [None]
  - SURGERY [None]
